FAERS Safety Report 5283090-6 (Version None)
Quarter: 2007Q2

REPORT INFORMATION
  Report Type: 
  Country: None (occurrence: None)
  Receive Date: 20070402
  Receipt Date: 20070323
  Transmission Date: 20071010
  Serious: Yes (Other)
  Sender: FDA-Public Use
  Company Number: DE-AVENTIS-200710674DE

PATIENT
  Age: 50 Year
  Sex: Female

DRUGS (2)
  1. TAXOTERE [Suspect]
     Route: 042
  2. ERBITUX [Concomitant]
     Dosage: DOSE: NOT REPORTED

REACTIONS (2)
  - CONFUSIONAL STATE [None]
  - NERVOUS SYSTEM DISORDER [None]
